FAERS Safety Report 9738264 (Version 1)
Quarter: 2013Q4

REPORT INFORMATION
  Report Type: Spontaneous
  Country: JP (occurrence: JP)
  Receive Date: 20131208
  Receipt Date: 20131208
  Transmission Date: 20140711
  Serious: Yes (Death)
  Sender: FDA-Public Use
  Company Number: JP-TEVA-448381ISR

PATIENT
  Age: 56 Year
  Sex: Male

DRUGS (12)
  1. E-FEN BUCCAL TABLET [Suspect]
     Indication: CANCER PAIN
     Dosage: UNIT DOSE:100 MICROGRAM-200 MICROGRAM DAILY DOSE:100 MICROGRAM-300 MICROGRAM
     Route: 048
     Dates: start: 20131011, end: 20131015
  2. METHAPAIN [Concomitant]
     Route: 048
     Dates: start: 20131010, end: 20131024
  3. OXINORM [Concomitant]
     Route: 048
     Dates: start: 20131003
  4. AMITIZA [Concomitant]
     Route: 048
     Dates: start: 20131011, end: 20131011
  5. TOKAKUJOKITO [Concomitant]
     Route: 048
     Dates: start: 20131011, end: 20131011
  6. ELCITONIN [Concomitant]
     Route: 051
     Dates: start: 20131011, end: 20131027
  7. RINDERON [Concomitant]
     Route: 051
     Dates: start: 20131023, end: 20131023
  8. RINDERON [Concomitant]
     Route: 051
     Dates: start: 20131024, end: 20131027
  9. RINDERON [Concomitant]
     Route: 051
     Dates: start: 20131028, end: 20131028
  10. ROPION [Concomitant]
     Route: 051
     Dates: start: 20131025, end: 20131027
  11. ROPION [Concomitant]
     Route: 051
     Dates: start: 20131028, end: 20131028
  12. MORPHINE HYDROCHLORIDE [Concomitant]
     Route: 051
     Dates: start: 20131026, end: 20131028

REACTIONS (1)
  - Lung neoplasm malignant [Fatal]
